FAERS Safety Report 10623134 (Version 1)
Quarter: 2014Q4

REPORT INFORMATION
  Report Type: Spontaneous
  Country: US (occurrence: US)
  Receive Date: 20141203
  Receipt Date: 20141203
  Transmission Date: 20150529
  Serious: No
  Sender: FDA-Public Use
  Company Number: US-MALLINCKRODT-T201402738

PATIENT
  Sex: Female

DRUGS (1)
  1. HYDROMORPHONE [Suspect]
     Active Substance: HYDROMORPHONE
     Indication: PAIN
     Dosage: 8 MG, TID
     Route: 048
     Dates: start: 20140622

REACTIONS (2)
  - Product contamination [Unknown]
  - Drug screen positive [Unknown]

NARRATIVE: CASE EVENT DATE: 20140630
